FAERS Safety Report 8215511-0 (Version None)
Quarter: 2012Q1

REPORT INFORMATION
  Report Type: 
  Country: None (occurrence: None)
  Receive Date: 20120229
  Receipt Date: 20110811
  Transmission Date: 20120608
  Serious: Yes (Other)
  Sender: FDA-Public Use
  Company Number: PHEH2011US01695

PATIENT
  Age: 32 Year
  Sex: Female
  Weight: 73 kg

DRUGS (2)
  1. PREDNISONE TAB [Concomitant]
  2. NEORAL [Suspect]
     Indication: PROPHYLAXIS AGAINST TRANSPLANT REJECTION
     Dosage: 25 MG, DAILY, ORAL
     Route: 048
     Dates: start: 19950701, end: 20000801

REACTIONS (2)
  - DEPRESSION [None]
  - DRUG INEFFECTIVE [None]
